FAERS Safety Report 9628424 (Version 1)
Quarter: 2013Q4

REPORT INFORMATION
  Report Type: Spontaneous
  Country: US (occurrence: US)
  Receive Date: 20131017
  Receipt Date: 20131017
  Transmission Date: 20140711
  Serious: No
  Sender: FDA-Public Use
  Company Number: US-PFIZER INC-2013293850

PATIENT
  Age: 50 Year
  Sex: Female

DRUGS (3)
  1. GLUCOTROL XL [Suspect]
     Dosage: UNK
     Dates: end: 201310
  2. LYRICA [Concomitant]
     Dosage: 100 MG CAPSULES 2X/DAY
     Route: 048
  3. LEVEMIR [Concomitant]
     Dosage: 160 MG INJECTION ONCE A DAY

REACTIONS (1)
  - Blood glucose increased [Unknown]
